FAERS Safety Report 5340914-1 (Version None)
Quarter: 2007Q2

REPORT INFORMATION
  Report Type: 
  Country: None (occurrence: None)
  Receive Date: 20070531
  Receipt Date: 20070522
  Transmission Date: 20071010
  Serious: No
  Sender: FDA-Public Use
  Company Number: JP-MERCK-0705USA00074

PATIENT
  Age: 54 Year
  Sex: Female

DRUGS (7)
  1. COZAAR [Suspect]
     Indication: HYPERTENSION
     Route: 048
     Dates: start: 20050101, end: 20070313
  2. CYANOCOBALAMIN [Suspect]
     Route: 065
     Dates: start: 20050101
  3. DEPAS [Suspect]
     Route: 048
     Dates: start: 20050101
  4. ADEPHOS [Concomitant]
     Route: 065
  5. HICEE [Concomitant]
     Route: 065
  6. [THERAPY UNSPECIFIED] [Concomitant]
     Route: 065
  7. SELBEX [Concomitant]
     Route: 065

REACTIONS (1)
  - LICHEN PLANUS [None]
